FAERS Safety Report 16368007 (Version 1)
Quarter: 2019Q2

REPORT INFORMATION
  Report Type: Spontaneous
  Country: CN (occurrence: CN)
  Receive Date: 20190529
  Receipt Date: 20190529
  Transmission Date: 20190711
  Serious: Yes (Other)
  Sender: FDA-Public Use
  Company Number: CN-BAXTER-2019BAX010279

PATIENT
  Age: 49 Year
  Sex: Female
  Weight: 49 kg

DRUGS (12)
  1. 0.9% SODIUM CHLORIDE INJECTION [Suspect]
     Active Substance: SODIUM CHLORIDE
     Dosage: ENDOXAN 870 MG + NS 45 ML, SECOND TIME CHEMOTHERAPY
     Route: 042
     Dates: start: 20190416, end: 20190416
  2. 0.9% SODIUM CHLORIDE INJECTION [Suspect]
     Active Substance: SODIUM CHLORIDE
     Dosage: TAXOTERE 109 MG + NS 250 ML, SECOND TIME CHEMOTHERAPY
     Route: 041
     Dates: start: 20190416, end: 20190416
  3. ENDOXAN [Suspect]
     Active Substance: CYCLOPHOSPHAMIDE
     Indication: BREAST CANCER FEMALE
     Dosage: ENDOXAN +NS, FIRST TIME CHEMOTHERAPY
     Route: 042
  4. TAXOTERE [Suspect]
     Active Substance: DOCETAXEL
     Dosage: TAXOTERE 109 MG + NS 250 ML, SECOND TIME CHEMOTHERAPY
     Route: 041
     Dates: start: 20190416, end: 20190416
  5. ENDOXAN [Suspect]
     Active Substance: CYCLOPHOSPHAMIDE
     Dosage: ENDOXAN 870 MG + NS 45 ML, SECOND TIME CHEMOTHERAPY
     Route: 042
     Dates: start: 20190416, end: 20190416
  6. 0.9% SODIUM CHLORIDE INJECTION [Suspect]
     Active Substance: SODIUM CHLORIDE
     Dosage: ENDOXAN + NS, DOSE RE-INTRODUCED
     Route: 042
  7. 0.9% SODIUM CHLORIDE INJECTION [Suspect]
     Active Substance: SODIUM CHLORIDE
     Dosage: TAXOTERE + NS, FIRST TIME CHEMOTHERAPY
     Route: 041
  8. TAXOTERE [Suspect]
     Active Substance: DOCETAXEL
     Indication: BREAST CANCER FEMALE
     Dosage: TAXOTERE + NS, FIRST TIME CHEMOTHERAPY
     Route: 041
  9. TAXOTERE [Suspect]
     Active Substance: DOCETAXEL
     Dosage: TAXOTERE + NS, DOSE RE-INTRODUCED
     Route: 041
  10. 0.9% SODIUM CHLORIDE INJECTION [Suspect]
     Active Substance: SODIUM CHLORIDE
     Dosage: TAXOTERE + NS, DOSE RE-INTRODUCED
     Route: 041
  11. ENDOXAN [Suspect]
     Active Substance: CYCLOPHOSPHAMIDE
     Dosage: ENDOXAN +NS, DOSE RE-INTRODUCED
     Route: 042
  12. 0.9% SODIUM CHLORIDE INJECTION [Suspect]
     Active Substance: SODIUM CHLORIDE
     Indication: MEDICATION DILUTION
     Dosage: ENDOXAN + NS, FIRST TIME CHEMOTHERAPY
     Route: 042

REACTIONS (2)
  - Agranulocytosis [Recovered/Resolved]
  - Leukopenia [Recovered/Resolved]

NARRATIVE: CASE EVENT DATE: 20190423
